FAERS Safety Report 21300844 (Version 6)
Quarter: 2025Q3

REPORT INFORMATION
  Report Type: Spontaneous
  Country: GB (occurrence: GB)
  Receive Date: 20220907
  Receipt Date: 20250729
  Transmission Date: 20251020
  Serious: Yes (Hospitalization, Other)
  Sender: ALEXION PHARMACEUTICALS
  Company Number: 2022A303096

PATIENT
  Age: 55 Year
  Sex: Male

DRUGS (166)
  1. OMEPRAZOLE [Suspect]
     Active Substance: OMEPRAZOLE
     Indication: Duodenal ulcer
  2. OMEPRAZOLE [Suspect]
     Active Substance: OMEPRAZOLE
     Indication: Dyspepsia
  3. QUETIAPINE FUMARATE [Interacting]
     Active Substance: QUETIAPINE FUMARATE
     Indication: Depression
  4. RAMIPRIL [Interacting]
     Active Substance: RAMIPRIL
     Indication: Cardiac failure
     Dosage: 1.25 MG, QD
     Dates: start: 20130813
  5. RAMIPRIL [Interacting]
     Active Substance: RAMIPRIL
     Dosage: 1MG, QD
     Dates: start: 20130813
  6. ISOSORBIDE MONONITRATE [Interacting]
     Active Substance: ISOSORBIDE MONONITRATE
     Indication: Angina pectoris
     Dosage: 10 MG, QD, MODIFIED-RELEASE CAPSULE, HARD,
     Dates: start: 20160205
  7. IVABRADINE HYDROCHLORIDE [Suspect]
     Active Substance: IVABRADINE HYDROCHLORIDE
     Indication: Angina pectoris
     Dosage: 5 MG, BID, 12 HOURLY
     Route: 065
     Dates: start: 20150211
  8. IVABRADINE HYDROCHLORIDE [Suspect]
     Active Substance: IVABRADINE HYDROCHLORIDE
     Route: 065
  9. IVABRADINE HYDROCHLORIDE [Suspect]
     Active Substance: IVABRADINE HYDROCHLORIDE
     Dosage: 5 MG, QD
     Route: 065
     Dates: start: 20150211
  10. IVABRADINE HYDROCHLORIDE [Suspect]
     Active Substance: IVABRADINE HYDROCHLORIDE
     Route: 065
  11. CARVEDILOL [Interacting]
     Active Substance: CARVEDILOL
     Indication: Angina pectoris
     Dosage: 50 MG, QD (25MG, BID)
     Route: 065
     Dates: start: 20110616
  12. CARVEDILOL [Interacting]
     Active Substance: CARVEDILOL
     Dosage: 25 MG, QD
     Route: 065
     Dates: start: 20110616
  13. CARVEDILOL [Interacting]
     Active Substance: CARVEDILOL
     Dosage: 25 MG, BID
     Route: 065
     Dates: start: 20110616
  14. CARVEDILOL [Interacting]
     Active Substance: CARVEDILOL
     Dosage: 25 MG, BID
     Route: 065
     Dates: start: 20110616
  15. CARVEDILOL [Interacting]
     Active Substance: CARVEDILOL
     Dosage: 25 MG, BID
     Route: 065
     Dates: start: 20110616
  16. FUROSEMIDE [Interacting]
     Active Substance: FUROSEMIDE
     Indication: Pulmonary oedema
     Dosage: 40 MG, QD
     Dates: start: 20160402
  17. FUROSEMIDE [Interacting]
     Active Substance: FUROSEMIDE
     Indication: Left ventricular dysfunction
     Dosage: 40 MG, QD
     Route: 065
     Dates: start: 20160402
  18. FUROSEMIDE [Interacting]
     Active Substance: FUROSEMIDE
     Indication: Lung disorder
     Dosage: 40 MG, QD
     Route: 065
     Dates: start: 20160402
  19. FUROSEMIDE [Interacting]
     Active Substance: FUROSEMIDE
     Indication: Pleural effusion
     Dosage: 80 MG, QD
     Dates: start: 20160402
  20. FUROSEMIDE [Interacting]
     Active Substance: FUROSEMIDE
     Indication: Pulmonary oedema
  21. FUROSEMIDE [Interacting]
     Active Substance: FUROSEMIDE
     Indication: Pulmonary oedema
  22. BOCOCIZUMAB [Suspect]
     Active Substance: BOCOCIZUMAB
     Indication: Cardiovascular disorder
     Dosage: 150 MG, Q2WEEKS, FREQUENCY - 2 WEEKS, E
     Dates: start: 20150908, end: 20161101
  23. BOCOCIZUMAB [Suspect]
     Active Substance: BOCOCIZUMAB
     Indication: Cardiovascular disorder
  24. BOCOCIZUMAB [Suspect]
     Active Substance: BOCOCIZUMAB
     Indication: Angina pectoris
     Dosage: 50 MG, QD (25 MG, BID)
     Dates: start: 20110616
  25. BOCOCIZUMAB [Suspect]
     Active Substance: BOCOCIZUMAB
  26. BOCOCIZUMAB [Suspect]
     Active Substance: BOCOCIZUMAB
  27. BOCOCIZUMAB [Suspect]
     Active Substance: BOCOCIZUMAB
  28. BOCOCIZUMAB [Suspect]
     Active Substance: BOCOCIZUMAB
  29. BOCOCIZUMAB [Suspect]
     Active Substance: BOCOCIZUMAB
  30. BOCOCIZUMAB [Suspect]
     Active Substance: BOCOCIZUMAB
  31. SACUBITRIL [Concomitant]
     Active Substance: SACUBITRIL
     Indication: Left ventricular dysfunction
  32. SACUBITRIL [Concomitant]
     Active Substance: SACUBITRIL
     Indication: Left ventricular dysfunction
  33. SACUBITRIL [Concomitant]
     Active Substance: SACUBITRIL
     Indication: Left ventricular dysfunction
  34. SACUBITRIL [Concomitant]
     Active Substance: SACUBITRIL
  35. ACETAMINOPHEN\CODEINE PHOSPHATE [Concomitant]
     Active Substance: ACETAMINOPHEN\CODEINE PHOSPHATE
     Indication: Pain in extremity
  36. ACETAMINOPHEN\CODEINE PHOSPHATE [Concomitant]
     Active Substance: ACETAMINOPHEN\CODEINE PHOSPHATE
     Indication: Pain in extremity
     Route: 065
  37. ACETAMINOPHEN\CODEINE PHOSPHATE [Concomitant]
     Active Substance: ACETAMINOPHEN\CODEINE PHOSPHATE
     Indication: Pain in extremity
     Route: 065
  38. ACETAMINOPHEN\CODEINE PHOSPHATE [Concomitant]
     Active Substance: ACETAMINOPHEN\CODEINE PHOSPHATE
     Route: 065
  39. ACETAMINOPHEN\CODEINE PHOSPHATE [Concomitant]
     Active Substance: ACETAMINOPHEN\CODEINE PHOSPHATE
     Route: 065
  40. ENTRESTO [Concomitant]
     Active Substance: SACUBITRIL\VALSARTAN
     Indication: Left ventricular dysfunction
  41. ENTRESTO [Concomitant]
     Active Substance: SACUBITRIL\VALSARTAN
     Indication: Left ventricular dysfunction
     Route: 065
  42. ENTRESTO [Concomitant]
     Active Substance: SACUBITRIL\VALSARTAN
  43. ENTRESTO [Concomitant]
     Active Substance: SACUBITRIL\VALSARTAN
     Route: 065
  44. ENTRESTO [Concomitant]
     Active Substance: SACUBITRIL\VALSARTAN
  45. ENTRESTO [Concomitant]
     Active Substance: SACUBITRIL\VALSARTAN
  46. ENTRESTO [Concomitant]
     Active Substance: SACUBITRIL\VALSARTAN
  47. ENTRESTO [Concomitant]
     Active Substance: SACUBITRIL\VALSARTAN
  48. NITROGLYCERIN [Concomitant]
     Active Substance: NITROGLYCERIN
     Indication: Cardiovascular disorder
     Route: 065
  49. NITROGLYCERIN [Concomitant]
     Active Substance: NITROGLYCERIN
     Indication: Pain
  50. BETAMETHASONE DIPROPIONATE\CLOTRIMAZOLE [Concomitant]
     Active Substance: BETAMETHASONE DIPROPIONATE\CLOTRIMAZOLE
     Indication: Psoriasis
     Route: 065
  51. CODEINE PHOSPHATE [Concomitant]
     Active Substance: CODEINE PHOSPHATE
     Indication: Product used for unknown indication
  52. CODEINE PHOSPHATE [Concomitant]
     Active Substance: CODEINE PHOSPHATE
     Indication: Product used for unknown indication
  53. CODEINE PHOSPHATE [Concomitant]
     Active Substance: CODEINE PHOSPHATE
  54. CODEINE PHOSPHATE [Concomitant]
     Active Substance: CODEINE PHOSPHATE
  55. CODEINE PHOSPHATE [Concomitant]
     Active Substance: CODEINE PHOSPHATE
  56. CODEINE PHOSPHATE [Concomitant]
     Active Substance: CODEINE PHOSPHATE
  57. CODEINE PHOSPHATE [Concomitant]
     Active Substance: CODEINE PHOSPHATE
  58. CODEINE PHOSPHATE [Concomitant]
     Active Substance: CODEINE PHOSPHATE
  59. CODEINE PHOSPHATE [Concomitant]
     Active Substance: CODEINE PHOSPHATE
  60. CODEINE PHOSPHATE [Concomitant]
     Active Substance: CODEINE PHOSPHATE
  61. CODEINE PHOSPHATE [Concomitant]
     Active Substance: CODEINE PHOSPHATE
  62. CODEINE PHOSPHATE [Concomitant]
     Active Substance: CODEINE PHOSPHATE
  63. CODEINE PHOSPHATE [Concomitant]
     Active Substance: CODEINE PHOSPHATE
  64. CODEINE PHOSPHATE [Concomitant]
     Active Substance: CODEINE PHOSPHATE
  65. CODEINE PHOSPHATE [Concomitant]
     Active Substance: CODEINE PHOSPHATE
  66. CODEINE PHOSPHATE [Concomitant]
     Active Substance: CODEINE PHOSPHATE
  67. CODEINE PHOSPHATE [Concomitant]
     Active Substance: CODEINE PHOSPHATE
  68. CODEINE PHOSPHATE [Concomitant]
     Active Substance: CODEINE PHOSPHATE
  69. CODEINE PHOSPHATE [Concomitant]
     Active Substance: CODEINE PHOSPHATE
  70. CODEINE PHOSPHATE [Concomitant]
     Active Substance: CODEINE PHOSPHATE
  71. CODEINE PHOSPHATE [Concomitant]
     Active Substance: CODEINE PHOSPHATE
  72. CODEINE PHOSPHATE [Concomitant]
     Active Substance: CODEINE PHOSPHATE
  73. CODEINE PHOSPHATE [Concomitant]
     Active Substance: CODEINE PHOSPHATE
  74. CODEINE PHOSPHATE [Concomitant]
     Active Substance: CODEINE PHOSPHATE
  75. CODEINE PHOSPHATE [Concomitant]
     Active Substance: CODEINE PHOSPHATE
  76. CODEINE PHOSPHATE [Concomitant]
     Active Substance: CODEINE PHOSPHATE
  77. CODEINE PHOSPHATE [Concomitant]
     Active Substance: CODEINE PHOSPHATE
  78. CODEINE PHOSPHATE [Concomitant]
     Active Substance: CODEINE PHOSPHATE
  79. CODEINE PHOSPHATE [Concomitant]
     Active Substance: CODEINE PHOSPHATE
  80. CODEINE PHOSPHATE [Concomitant]
     Active Substance: CODEINE PHOSPHATE
  81. CODEINE PHOSPHATE [Concomitant]
     Active Substance: CODEINE PHOSPHATE
  82. CODEINE PHOSPHATE [Concomitant]
     Active Substance: CODEINE PHOSPHATE
  83. CODEINE PHOSPHATE [Concomitant]
     Active Substance: CODEINE PHOSPHATE
  84. CODEINE PHOSPHATE [Concomitant]
     Active Substance: CODEINE PHOSPHATE
  85. CODEINE PHOSPHATE [Concomitant]
     Active Substance: CODEINE PHOSPHATE
  86. CODEINE PHOSPHATE [Concomitant]
     Active Substance: CODEINE PHOSPHATE
  87. CODEINE PHOSPHATE [Concomitant]
     Active Substance: CODEINE PHOSPHATE
  88. CODEINE PHOSPHATE [Concomitant]
     Active Substance: CODEINE PHOSPHATE
  89. CODEINE PHOSPHATE [Concomitant]
     Active Substance: CODEINE PHOSPHATE
  90. CODEINE PHOSPHATE [Concomitant]
     Active Substance: CODEINE PHOSPHATE
  91. CODEINE PHOSPHATE [Concomitant]
     Active Substance: CODEINE PHOSPHATE
  92. CODEINE PHOSPHATE [Concomitant]
     Active Substance: CODEINE PHOSPHATE
  93. CODEINE PHOSPHATE [Concomitant]
     Active Substance: CODEINE PHOSPHATE
  94. CODEINE PHOSPHATE [Concomitant]
     Active Substance: CODEINE PHOSPHATE
  95. CODEINE PHOSPHATE [Concomitant]
     Active Substance: CODEINE PHOSPHATE
  96. CODEINE PHOSPHATE [Concomitant]
     Active Substance: CODEINE PHOSPHATE
  97. CODEINE PHOSPHATE [Concomitant]
     Active Substance: CODEINE PHOSPHATE
  98. CODEINE PHOSPHATE [Concomitant]
     Active Substance: CODEINE PHOSPHATE
  99. CODEINE PHOSPHATE [Concomitant]
     Active Substance: CODEINE PHOSPHATE
  100. CODEINE PHOSPHATE [Concomitant]
     Active Substance: CODEINE PHOSPHATE
  101. CODEINE PHOSPHATE [Concomitant]
     Active Substance: CODEINE PHOSPHATE
  102. CODEINE PHOSPHATE [Concomitant]
     Active Substance: CODEINE PHOSPHATE
  103. CODEINE PHOSPHATE [Concomitant]
     Active Substance: CODEINE PHOSPHATE
  104. CODEINE PHOSPHATE [Concomitant]
     Active Substance: CODEINE PHOSPHATE
  105. CODEINE PHOSPHATE [Concomitant]
     Active Substance: CODEINE PHOSPHATE
  106. CODEINE PHOSPHATE [Concomitant]
     Active Substance: CODEINE PHOSPHATE
  107. CODEINE PHOSPHATE [Concomitant]
     Active Substance: CODEINE PHOSPHATE
  108. CODEINE PHOSPHATE [Concomitant]
     Active Substance: CODEINE PHOSPHATE
  109. CODEINE PHOSPHATE [Concomitant]
     Active Substance: CODEINE PHOSPHATE
  110. CODEINE PHOSPHATE [Concomitant]
     Active Substance: CODEINE PHOSPHATE
  111. CODEINE PHOSPHATE [Concomitant]
     Active Substance: CODEINE PHOSPHATE
  112. CODEINE PHOSPHATE [Concomitant]
     Active Substance: CODEINE PHOSPHATE
  113. CODEINE PHOSPHATE [Concomitant]
     Active Substance: CODEINE PHOSPHATE
  114. CODEINE PHOSPHATE [Concomitant]
     Active Substance: CODEINE PHOSPHATE
  115. CODEINE PHOSPHATE [Concomitant]
     Active Substance: CODEINE PHOSPHATE
  116. CODEINE PHOSPHATE [Concomitant]
     Active Substance: CODEINE PHOSPHATE
  117. CODEINE PHOSPHATE [Concomitant]
     Active Substance: CODEINE PHOSPHATE
  118. CODEINE PHOSPHATE [Concomitant]
     Active Substance: CODEINE PHOSPHATE
  119. CODEINE PHOSPHATE [Concomitant]
     Active Substance: CODEINE PHOSPHATE
  120. CODEINE PHOSPHATE [Concomitant]
     Active Substance: CODEINE PHOSPHATE
  121. CODEINE PHOSPHATE [Concomitant]
     Active Substance: CODEINE PHOSPHATE
  122. CODEINE PHOSPHATE [Concomitant]
     Active Substance: CODEINE PHOSPHATE
  123. CODEINE PHOSPHATE [Concomitant]
     Active Substance: CODEINE PHOSPHATE
  124. CODEINE PHOSPHATE [Concomitant]
     Active Substance: CODEINE PHOSPHATE
  125. CODEINE PHOSPHATE [Concomitant]
     Active Substance: CODEINE PHOSPHATE
  126. CODEINE PHOSPHATE [Concomitant]
     Active Substance: CODEINE PHOSPHATE
  127. CODEINE PHOSPHATE [Concomitant]
     Active Substance: CODEINE PHOSPHATE
  128. CODEINE PHOSPHATE [Concomitant]
     Active Substance: CODEINE PHOSPHATE
  129. CODEINE PHOSPHATE [Concomitant]
     Active Substance: CODEINE PHOSPHATE
  130. CODEINE PHOSPHATE [Concomitant]
     Active Substance: CODEINE PHOSPHATE
  131. CODEINE PHOSPHATE [Concomitant]
     Active Substance: CODEINE PHOSPHATE
  132. CODEINE PHOSPHATE [Concomitant]
     Active Substance: CODEINE PHOSPHATE
  133. CODEINE PHOSPHATE [Concomitant]
     Active Substance: CODEINE PHOSPHATE
  134. CODEINE PHOSPHATE [Concomitant]
     Active Substance: CODEINE PHOSPHATE
  135. CODEINE PHOSPHATE [Concomitant]
     Active Substance: CODEINE PHOSPHATE
  136. CODEINE PHOSPHATE [Concomitant]
     Active Substance: CODEINE PHOSPHATE
  137. CODEINE PHOSPHATE [Concomitant]
     Active Substance: CODEINE PHOSPHATE
  138. CODEINE PHOSPHATE [Concomitant]
     Active Substance: CODEINE PHOSPHATE
  139. CODEINE PHOSPHATE [Concomitant]
     Active Substance: CODEINE PHOSPHATE
  140. CODEINE PHOSPHATE [Concomitant]
     Active Substance: CODEINE PHOSPHATE
  141. CODEINE PHOSPHATE [Concomitant]
     Active Substance: CODEINE PHOSPHATE
  142. CODEINE PHOSPHATE [Concomitant]
     Active Substance: CODEINE PHOSPHATE
  143. CODEINE PHOSPHATE [Concomitant]
     Active Substance: CODEINE PHOSPHATE
  144. CODEINE PHOSPHATE [Concomitant]
     Active Substance: CODEINE PHOSPHATE
  145. QUETIAPINE FUMARATE [Concomitant]
     Active Substance: QUETIAPINE FUMARATE
     Indication: Depression
  146. FOLIC ACID [Concomitant]
     Active Substance: FOLIC ACID
     Indication: Anaemia
     Route: 065
  147. METHOTREXATE [Concomitant]
     Active Substance: METHOTREXATE
     Indication: Psoriasis
     Route: 065
  148. ATORVASTATIN [Concomitant]
     Active Substance: ATORVASTATIN
     Indication: Cardiovascular disorder
     Route: 065
  149. ASPIRIN [Concomitant]
     Active Substance: ASPIRIN
     Indication: Cardiovascular disorder
     Route: 065
  150. SERTRALINE HYDROCHLORIDE [Concomitant]
     Active Substance: SERTRALINE HYDROCHLORIDE
     Indication: Depression
     Route: 065
  151. SERTRALINE HYDROCHLORIDE [Concomitant]
     Active Substance: SERTRALINE HYDROCHLORIDE
     Route: 065
  152. SERTRALINE HYDROCHLORIDE [Concomitant]
     Active Substance: SERTRALINE HYDROCHLORIDE
     Route: 065
  153. SERTRALINE HYDROCHLORIDE [Concomitant]
     Active Substance: SERTRALINE HYDROCHLORIDE
     Route: 065
  154. BETAMETHASONE DIPROPIONATE [Concomitant]
     Active Substance: BETAMETHASONE DIPROPIONATE
     Indication: Psoriasis
     Route: 065
  155. ASPIRIN [Concomitant]
     Active Substance: ASPIRIN
     Indication: Cardiovascular disorder
     Route: 065
  156. IVABRADINE [Concomitant]
     Active Substance: IVABRADINE
     Indication: Angina pectoris
     Dosage: 5 MG, BID
     Route: 065
     Dates: start: 20150211
  157. IVABRADINE [Concomitant]
     Active Substance: IVABRADINE
     Dosage: 5 MG, QD
     Route: 065
     Dates: start: 20150211
  158. IVABRADINE [Concomitant]
     Active Substance: IVABRADINE
     Dosage: 10 MG, QD (5 MG, BID)
     Route: 065
     Dates: start: 20150211
  159. IVABRADINE [Concomitant]
     Active Substance: IVABRADINE
     Dosage: 5 MG
     Route: 065
     Dates: start: 20150211
  160. IVABRADINE [Concomitant]
     Active Substance: IVABRADINE
     Dosage: 10 MG, QD (5 MG, BID)
     Route: 065
  161. IVABRADINE [Concomitant]
     Active Substance: IVABRADINE
     Dosage: 10 MG, QD (5 MG, BID)
     Route: 065
     Dates: start: 20150211
  162. ACETAMINOPHEN [Concomitant]
     Active Substance: ACETAMINOPHEN
     Indication: Pain in extremity
  163. ACETAMINOPHEN [Concomitant]
     Active Substance: ACETAMINOPHEN
     Route: 065
  164. OMEPRAZOLE [Interacting]
     Active Substance: OMEPRAZOLE
     Indication: Dyspepsia
  165. OMEPRAZOLE [Interacting]
     Active Substance: OMEPRAZOLE
     Indication: Duodenal ulcer
  166. OMEPRAZOLE [Interacting]
     Active Substance: OMEPRAZOLE
     Indication: Pain in extremity

REACTIONS (12)
  - Anaemia [Unknown]
  - Hypotension [Recovered/Resolved]
  - Fluid retention [Unknown]
  - Psoriasis [Unknown]
  - Contusion [Recovered/Resolved]
  - Oedema peripheral [Not Recovered/Not Resolved]
  - Drug interaction [Recovered/Resolved]
  - Cardiac failure [Unknown]
  - Presyncope [Unknown]
  - Ventricular dysfunction [Unknown]
  - Pulmonary oedema [Unknown]
  - Angina pectoris [Unknown]

NARRATIVE: CASE EVENT DATE: 20130919
